FAERS Safety Report 11705992 (Version 1)
Quarter: 2015Q4

REPORT INFORMATION
  Report Type: Spontaneous
  Country: US (occurrence: US)
  Receive Date: 20151106
  Receipt Date: 20151106
  Transmission Date: 20160304
  Serious: No
  Sender: FDA-Public Use
  Company Number: US-009507513-1511USA003113

PATIENT
  Age: 35 Year
  Sex: Female

DRUGS (2)
  1. CELESTONE [Suspect]
     Active Substance: BETAMETHASONE
     Route: 048
  2. MAGNESIUM SULFATE. [Suspect]
     Active Substance: MAGNESIUM SULFATE
     Indication: PROPHYLAXIS

REACTIONS (1)
  - Exposure during pregnancy [Not Recovered/Not Resolved]
